FAERS Safety Report 7300692-3 (Version None)
Quarter: 2011Q1

REPORT INFORMATION
  Report Type: 
  Country: None (occurrence: None)
  Receive Date: 20110207
  Receipt Date: 20110124
  Transmission Date: 20110831
  Serious: Yes (Other)
  Sender: FDA-Public Use
  Company Number: DSA_44850_2011

PATIENT
  Sex: Female

DRUGS (3)
  1. BUPROPION HYDROCHLORIDE [Suspect]
     Indication: ANXIETY
     Dosage: (150 MG QD ORAL)
     Route: 048
     Dates: start: 20110113
  2. METFORMIN [Concomitant]
  3. GLIBENKLAMID [Concomitant]

REACTIONS (5)
  - MALAISE [None]
  - AGGRESSION [None]
  - HYPERHIDROSIS [None]
  - LIBIDO DECREASED [None]
  - IRRITABILITY [None]
